FAERS Safety Report 6818203-5 (Version None)
Quarter: 2010Q3

REPORT INFORMATION
  Report Type: 
  Country: None (occurrence: None)
  Receive Date: 20100706
  Receipt Date: 20070514
  Transmission Date: 20110219
  Serious: No
  Sender: FDA-Public Use
  Company Number: US-PFIZER INC-2007039619

PATIENT
  Sex: Male

DRUGS (4)
  1. AZITHROMYCIN [Suspect]
     Indication: SINUSITIS
     Dates: start: 20070507
  2. MAXZIDE [Concomitant]
     Indication: HYPERTENSION
  3. LOTENSIN [Concomitant]
     Indication: HYPERTENSION
  4. ALLEGRA [Concomitant]

REACTIONS (4)
  - ABNORMAL DREAMS [None]
  - PYREXIA [None]
  - SECRETION DISCHARGE [None]
  - WEIGHT DECREASED [None]
